FAERS Safety Report 6062865-X (Version None)
Quarter: 2009Q1

REPORT INFORMATION
  Report Type: 
  Country: None (occurrence: None)
  Receive Date: 20090202
  Receipt Date: 20090202
  Transmission Date: 20090719
  Serious: Yes (Hospitalization)
  Sender: FDA-Public Use
  Company Number: None

PATIENT
  Age: 49 Year
  Sex: Female
  Weight: 61.6892 kg

DRUGS (1)
  1. PROPOFOL [Suspect]
     Indication: ENDOSCOPY
     Dosage: ONE TIME IV
     Route: 042
     Dates: start: 20090126, end: 20090126

REACTIONS (5)
  - ASTHENIA [None]
  - CHILLS [None]
  - HYPERSOMNIA [None]
  - PAIN [None]
  - PYREXIA [None]
